FAERS Safety Report 11923347 (Version 2)
Quarter: 2016Q3

REPORT INFORMATION
  Report Type: Spontaneous
  Country: US (occurrence: US)
  Receive Date: 20160118
  Receipt Date: 20160727
  Transmission Date: 20161109
  Serious: No
  Sender: FDA-Public Use
  Company Number: US-BRISTOL-MYERS SQUIBB COMPANY-BMS-2016-002119

PATIENT
  Age: 20 Year
  Sex: Female

DRUGS (1)
  1. ABILIFY [Suspect]
     Active Substance: ARIPIPRAZOLE
     Indication: SCHIZOPHRENIA
     Dosage: 10 MG, BID
     Route: 065
     Dates: start: 201505

REACTIONS (5)
  - Off label use [Unknown]
  - Malaise [Unknown]
  - Visual impairment [Unknown]
  - Abnormal behaviour [Unknown]
  - Dizziness [Unknown]

NARRATIVE: CASE EVENT DATE: 201505
